FAERS Safety Report 6648420-9 (Version None)
Quarter: 2010Q1

REPORT INFORMATION
  Report Type: 
  Country: None (occurrence: None)
  Receive Date: 20100324
  Receipt Date: 20100318
  Transmission Date: 20100710
  Serious: No
  Sender: FDA-Public Use
  Company Number: AR-ROCHE-692370

PATIENT
  Age: 37 Year
  Sex: Female

DRUGS (2)
  1. ISOTRETINOIN [Suspect]
     Indication: ACNE
     Route: 048
     Dates: start: 20100223, end: 20100302
  2. ISOTRETINOIN [Suspect]
     Route: 048
     Dates: start: 20100302, end: 20100309

REACTIONS (2)
  - NO ADVERSE EVENT [None]
  - PREGNANCY [None]
